FAERS Safety Report 6077205-X (Version None)
Quarter: 2009Q1

REPORT INFORMATION
  Report Type: 
  Country: None (occurrence: None)
  Receive Date: 20090213
  Receipt Date: 20090209
  Transmission Date: 20090719
  Serious: Yes (Hospitalization)
  Sender: FDA-Public Use
  Company Number: JP-AVENTIS-200910087JP

PATIENT
  Age: 72 Year
  Sex: Female
  Weight: 43.2 kg

DRUGS (17)
  1. ARAVA [Suspect]
     Indication: RHEUMATOID ARTHRITIS
     Route: 048
     Dates: start: 20031029, end: 20031031
  2. ARAVA [Suspect]
     Route: 048
     Dates: start: 20031101, end: 20040107
  3. ARAVA [Suspect]
     Route: 048
     Dates: start: 20040108
  4. LASIX [Suspect]
     Route: 048
     Dates: start: 20081204
  5. SENNARIDE [Suspect]
     Indication: CONSTIPATION
     Route: 048
     Dates: start: 20081002
  6. CELECOX [Suspect]
     Route: 048
     Dates: start: 20080207
  7. KREMEZIN [Suspect]
     Route: 048
     Dates: start: 20081204, end: 20090127
  8. GASCON [Suspect]
     Indication: GASTRITIS
     Route: 048
     Dates: start: 20081204, end: 20090127
  9. GASTER D [Concomitant]
     Indication: GASTRITIS PROPHYLAXIS
     Route: 048
     Dates: start: 20030403
  10. GASTER D [Concomitant]
     Route: 048
     Dates: start: 20030403
  11. PREDNISOLONE [Concomitant]
     Indication: RHEUMATOID ARTHRITIS
     Route: 048
     Dates: start: 20030710
  12. AZULFIDINE EN-TABS [Concomitant]
     Indication: RHEUMATOID ARTHRITIS
     Route: 048
     Dates: start: 20020215, end: 20031126
  13. BENET [Concomitant]
     Indication: OSTEOPOROSIS
     Route: 048
     Dates: start: 20020827
  14. VOLTAREN [Concomitant]
     Indication: RHEUMATOID ARTHRITIS
     Dates: start: 20021107, end: 20031112
  15. MOHRUS [Concomitant]
     Indication: RHEUMATOID ARTHRITIS
     Route: 061
     Dates: start: 20030904, end: 20040429
  16. MINOCYCLINE HCL [Concomitant]
     Indication: STOMATITIS
     Route: 048
     Dates: start: 20031225, end: 20040107
  17. HALCION [Concomitant]
     Indication: INSOMNIA
     Route: 048
     Dates: start: 20040205

REACTIONS (1)
  - LUNG INFECTION PSEUDOMONAL [None]
